FAERS Safety Report 5321015-5 (Version None)
Quarter: 2007Q1

REPORT INFORMATION
  Report Type: 
  Country: None (occurrence: None)
  Receive Date: 20070215
  Receipt Date: 20060711
  Transmission Date: 20070707
  Serious: No
  Sender: FDA-Public Use
  Company Number: 06H-163-0308692-00

PATIENT
  Sex: Female

DRUGS (1)
  1. PRECEDEX [Suspect]
     Dosage: INTRAVENOUS
     Route: 042
     Dates: start: 20060710

REACTIONS (3)
  - BLOOD POTASSIUM DECREASED [None]
  - CHEST PAIN [None]
  - ELECTROCARDIOGRAM T WAVE INVERSION [None]
